FAERS Safety Report 8984133 (Version 1)
Quarter: 2012Q4

REPORT INFORMATION
  Report Type: Spontaneous
  Country: GB (occurrence: None)
  Receive Date: 20121212
  Receipt Date: 20121212
  Transmission Date: 20130627
  Serious: Yes (Other)
  Sender: FDA-Public Use
  Company Number: 2012AP004123

PATIENT
  Age: 65 Year
  Sex: Female

DRUGS (2)
  1. TERBINAFINE [Suspect]
  2. MICONAZOLE [Concomitant]

REACTIONS (7)
  - Systemic lupus erythematosus [None]
  - Cutaneous lupus erythematosus [None]
  - Pyrexia [None]
  - Tachycardia [None]
  - Stevens-Johnson syndrome [None]
  - Conjunctival hyperaemia [None]
  - Toxic epidermal necrolysis [None]
